FAERS Safety Report 5230327-5 (Version None)
Quarter: 2007Q1

REPORT INFORMATION
  Report Type: 
  Country: None (occurrence: None)
  Receive Date: 20070206
  Receipt Date: 20070129
  Transmission Date: 20070707
  Serious: Yes (Other)
  Sender: FDA-Public Use
  Company Number: GB-GLAXOSMITHKLINE-B0457107A

PATIENT
  Age: 55 Year
  Sex: Male
  Weight: 74.9 kg

DRUGS (1)
  1. NYTOL [Suspect]
     Indication: INSOMNIA
     Route: 048
     Dates: end: 20070108

REACTIONS (1)
  - HEPATITIS TOXIC [None]
